FAERS Safety Report 4421228-0 (Version None)
Quarter: 2004Q3

REPORT INFORMATION
  Report Type: 
  Country: None (occurrence: None)
  Receive Date: 20040804
  Receipt Date: 20040720
  Transmission Date: 20050211
  Serious: Yes (Hospitalization)
  Sender: FDA-Public Use
  Company Number: 04P-163-0267635-00

PATIENT
  Age: 51 Year
  Sex: Female

DRUGS (2)
  1. VALPROIC ACID [Suspect]
     Indication: DRUG USE FOR UNKNOWN INDICATION
     Dosage: 500 MG, 1 IN 1 D, PER ORAL
     Route: 048
  2. LAMOTRIGINE [Suspect]
     Indication: DRUG USE FOR UNKNOWN INDICATION
     Dosage: 600 MG, 400 MG IN AM, 200 MG AT BEDTIME

REACTIONS (11)
  - ABNORMAL BEHAVIOUR [None]
  - ANTICONVULSANT DRUG LEVEL INCREASED [None]
  - CONFUSIONAL STATE [None]
  - CONSCIOUSNESS FLUCTUATING [None]
  - DELIRIUM [None]
  - DELUSION [None]
  - DEPRESSED LEVEL OF CONSCIOUSNESS [None]
  - DISORIENTATION [None]
  - DRUG INTERACTION [None]
  - HALLUCINATION, VISUAL [None]
  - PARANOIA [None]
